FAERS Safety Report 9624310 (Version 1)
Quarter: 2013Q4

REPORT INFORMATION
  Report Type: Spontaneous
  Country: US (occurrence: US)
  Receive Date: 20131015
  Receipt Date: 20131015
  Transmission Date: 20140711
  Serious: Yes (Other)
  Sender: FDA-Public Use
  Company Number: US-ELI_LILLY_AND_COMPANY-US201310002502

PATIENT
  Age: 66 Year
  Sex: Female

DRUGS (3)
  1. INSULIN HUMAN [Suspect]
     Indication: TYPE 1 DIABETES MELLITUS
     Route: 058
  2. GLUCAGON [Suspect]
     Indication: HYPOGLYCAEMIA
     Dosage: UNK, PRN
  3. NOVOLOG [Concomitant]
     Route: 058

REACTIONS (8)
  - Blood glucose increased [Unknown]
  - Blood glucose decreased [Unknown]
  - Headache [Unknown]
  - Expired drug administered [Unknown]
  - Wrong technique in drug usage process [Unknown]
  - Convulsion [Unknown]
  - Convulsion [Unknown]
  - Blood glucose decreased [Unknown]
